FAERS Safety Report 20612246 (Version 1)
Quarter: 2022Q1

REPORT INFORMATION
  Report Type: Other
  Country: US (occurrence: None)
  Receive Date: 20220318
  Receipt Date: 20220318
  Transmission Date: 20220423
  Serious: Yes (Other)
  Sender: FDA-Public Use
  Company Number: US-ROCHE-3046957

PATIENT
  Sex: Female

DRUGS (2)
  1. XELODA [Suspect]
     Active Substance: CAPECITABINE
     Indication: Colon cancer
     Dosage: TAKE FOUR 500MG TABLETS ALONG WITH ONE 150MG TABLET BY MOUTH TWICE A DAY FOR 2 WEEKS ON, 1 WEEK
     Route: 048
  2. XELODA [Suspect]
     Active Substance: CAPECITABINE
     Dosage: TAKE ONE 150MG TABLET ALONG WITH FOUR 500MG TABLETS BY MOUTH TWICE A DAY FOR 2 WEEKS ON, 1 WEEK
     Route: 048

REACTIONS (1)
  - Deafness [Unknown]
